FAERS Safety Report 17565288 (Version 1)
Quarter: 2020Q1

REPORT INFORMATION
  Report Type: Spontaneous
  Country: ID (occurrence: ID)
  Receive Date: 20200320
  Receipt Date: 20200320
  Transmission Date: 20200409
  Serious: Yes (Other)
  Sender: FDA-Public Use
  Company Number: NVSC2020ID078006

PATIENT
  Age: 17 Year
  Sex: Female

DRUGS (7)
  1. ISONIAZID. [Suspect]
     Active Substance: ISONIAZID
     Indication: TUBERCULOSIS OF EYE
     Dosage: UNK
     Route: 065
  2. ETHAMBUTOL [Suspect]
     Active Substance: ETHAMBUTOL HYDROCHLORIDE
     Indication: TUBERCULOSIS OF EYE
     Dosage: UNK
     Route: 065
  3. METHYLPREDNISOLONE. [Suspect]
     Active Substance: METHYLPREDNISOLONE
     Indication: TUBERCULOSIS OF EYE
     Dosage: 36 MG, QD
     Route: 065
  4. METHYLPREDNISOLONE. [Suspect]
     Active Substance: METHYLPREDNISOLONE
     Dosage: UNK TAPERED OFF EVERY 7 DAYS
     Route: 065
  5. RIFAMPICIN [Suspect]
     Active Substance: RIFAMPIN
     Indication: TUBERCULOSIS OF EYE
     Dosage: UNK
     Route: 065
  6. PYRAZINAMIDE. [Suspect]
     Active Substance: PYRAZINAMIDE
     Indication: TUBERCULOSIS OF EYE
     Dosage: UNK
     Route: 065
  7. METHYLPREDNISOLONE. [Suspect]
     Active Substance: METHYLPREDNISOLONE
     Dosage: 10 MG, QD FOR 1 MONTH
     Route: 065

REACTIONS (4)
  - Visual acuity tests abnormal [Unknown]
  - Product use in unapproved indication [Unknown]
  - Choroidal neovascularisation [Recovering/Resolving]
  - Visual impairment [Unknown]
